FAERS Safety Report 14315867 (Version 1)
Quarter: 2017Q4

REPORT INFORMATION
  Report Type: Spontaneous
  Country: DE (occurrence: DE)
  Receive Date: 20171221
  Receipt Date: 20171221
  Transmission Date: 20180321
  Serious: Yes (Hospitalization)
  Sender: FDA-Public Use
  Company Number: DE-ASTRAZENECA-2017SF29165

PATIENT
  Age: 88 Year
  Sex: Male

DRUGS (1)
  1. OSIMERTINIB. [Suspect]
     Active Substance: OSIMERTINIB
     Route: 048
     Dates: end: 20171215

REACTIONS (1)
  - Cardiac failure [Unknown]
